FAERS Safety Report 9344841 (Version 2)
Quarter: 2013Q2

REPORT INFORMATION
  Report Type: Spontaneous
  Country: FR (occurrence: FR)
  Receive Date: 20130612
  Receipt Date: 20130619
  Transmission Date: 20140414
  Serious: Yes (Other)
  Sender: FDA-Public Use
  Company Number: FR-TEVA-411390ISR

PATIENT
  Age: 82 Year
  Sex: Female

DRUGS (5)
  1. FUROSEMIDE TEVA 40MG [Suspect]
     Dosage: 80 MILLIGRAM DAILY; SUSPECTED BATCH DISCONTINUED , AND TREATMENT MAINTAINED WITH ANOTHER BOX
     Dates: end: 20130609
  2. CARDENSIEL [Concomitant]
     Dosage: 10 MILLIGRAM DAILY;
  3. COLCHIMAX [Concomitant]
  4. LEVOTHYROX [Concomitant]
     Dosage: 125 MICROGRAM DAILY; IN THE MORNING
  5. CANDESARTAN [Concomitant]
     Dosage: 16 MG

REACTIONS (7)
  - Phlebitis [Not Recovered/Not Resolved]
  - Limb discomfort [Not Recovered/Not Resolved]
  - Dyspnoea [Not Recovered/Not Resolved]
  - Dyspnoea [Not Recovered/Not Resolved]
  - Musculoskeletal stiffness [Not Recovered/Not Resolved]
  - Urinary tract disorder [Unknown]
  - Erythrocyanosis [Not Recovered/Not Resolved]
